FAERS Safety Report 6257282-3 (Version None)
Quarter: 2009Q3

REPORT INFORMATION
  Report Type: 
  Country: None (occurrence: None)
  Receive Date: 20090706
  Receipt Date: 20090623
  Transmission Date: 20100115
  Serious: No
  Sender: FDA-Public Use
  Company Number: US-ELI_LILLY_AND_COMPANY-US200906005493

PATIENT
  Sex: Male

DRUGS (1)
  1. CIALIS [Suspect]
     Dosage: 20 MG, UNKNOWN
     Route: 065
     Dates: start: 20090613

REACTIONS (5)
  - EYE DISORDER [None]
  - FEELING COLD [None]
  - MUSCULOSKELETAL DISCOMFORT [None]
  - OCULAR HYPERAEMIA [None]
  - THERAPEUTIC RESPONSE DECREASED [None]
